FAERS Safety Report 18685165 (Version 4)
Quarter: 2025Q1

REPORT INFORMATION
  Report Type: Spontaneous
  Country: GB (occurrence: GB)
  Receive Date: 20201231
  Receipt Date: 20250103
  Transmission Date: 20250409
  Serious: Yes (Other)
  Sender: AUROBINDO
  Company Number: GB-AUROBINDO-AUR-APL-2020-063776

PATIENT
  Age: 36 Year
  Sex: Male

DRUGS (2)
  1. METRONIDAZOLE [Suspect]
     Active Substance: METRONIDAZOLE
     Indication: Anal fistula
     Route: 065
  2. METRONIDAZOLE [Suspect]
     Active Substance: METRONIDAZOLE
     Indication: Crohn^s disease
     Dosage: 400 MILLIGRAM, 3 TIMES A DAY HIGH DOSE
     Route: 065

REACTIONS (8)
  - Optic neuropathy [Recovered/Resolved]
  - Toxic neuropathy [Recovered/Resolved]
  - Optic nerve injury [Recovered/Resolved]
  - Central vision loss [Recovered/Resolved]
  - Vision blurred [Recovered/Resolved]
  - Binocular visual dysfunction [Recovered/Resolved]
  - Dyschromatopsia [Recovered/Resolved]
  - Paraesthesia [Recovered/Resolved]

NARRATIVE: CASE EVENT DATE: 20120101
